FAERS Safety Report 17914846 (Version 4)
Quarter: 2020Q3

REPORT INFORMATION
  Report Type: Report from Study
  Country: None (occurrence: CN)
  Receive Date: 20200618
  Receipt Date: 20200723
  Transmission Date: 20201103
  Serious: Yes (Death, Life-Threatening, Hospitalization)
  Sender: FDA-Public Use
  Company Number: CN-ABBVIE-20P-035-3445687-00

PATIENT
  Age: 54 Year
  Sex: Male
  Weight: 61.9 kg

DRUGS (46)
  1. ALLOPURINOL. [Concomitant]
     Active Substance: ALLOPURINOL
     Indication: PROPHYLAXIS
     Route: 048
     Dates: start: 20200508, end: 20200602
  2. SODIUM BICARBONATE. [Concomitant]
     Active Substance: SODIUM BICARBONATE
     Route: 042
     Dates: start: 20200518, end: 20200518
  3. ACICLOVIR FOR INJECTION [Concomitant]
     Indication: INFECTION PROPHYLAXIS
     Route: 042
     Dates: start: 20200620, end: 20200704
  4. CARBAZOCHROME SODIUM SULFONATE FOR INJECTION [Concomitant]
     Indication: HAEMOSTASIS
     Route: 041
     Dates: start: 20200616, end: 20200619
  5. SOLU?MEDROL [Concomitant]
     Active Substance: METHYLPREDNISOLONE SODIUM SUCCINATE
     Indication: ANTIALLERGIC THERAPY
     Route: 041
     Dates: start: 20200705, end: 20200705
  6. VENETOCLAX. [Suspect]
     Active Substance: VENETOCLAX
     Indication: CHRONIC LYMPHOCYTIC LEUKAEMIA
     Route: 048
     Dates: start: 20200511, end: 20200517
  7. ZHENG CHAI HU YIN KE LI [Concomitant]
     Indication: PRODUCT USED FOR UNKNOWN INDICATION
     Route: 048
     Dates: start: 20200608, end: 20200614
  8. CARBAZOCHROME SODIUM SULFONATE FOR INJECTION [Concomitant]
     Route: 041
     Dates: start: 20200620, end: 20200704
  9. SODIUM BICARBONATE INJECTION [Concomitant]
     Active Substance: SODIUM BICARBONATE
     Indication: ACID BASE BALANCE ABNORMAL
     Route: 041
     Dates: start: 20200617, end: 20200617
  10. HUMAN ALBUMIN [Concomitant]
     Active Substance: ALBUMIN HUMAN
     Indication: SUPPLEMENTATION THERAPY
     Route: 041
     Dates: start: 20200619, end: 20200630
  11. HUMAN ALBUMIN [Concomitant]
     Active Substance: ALBUMIN HUMAN
     Route: 041
     Dates: start: 20200630, end: 20200704
  12. VENETOCLAX. [Suspect]
     Active Substance: VENETOCLAX
     Route: 048
     Dates: start: 20200518, end: 20200523
  13. COMPOUND SODIUM CHLORIDE [Concomitant]
     Route: 042
     Dates: start: 20200518, end: 20200518
  14. SODIUM POTASSIUM MAGNESIUM CALCIUM AND GLUCOSE INJECTION [Concomitant]
     Active Substance: CALCIUM GLUCONATE\DEXTROSE\MAGNESIUM CHLORIDE\POTASSIUM CHLORIDE\SODIUM ACETATE\SODIUM CHLORIDE\TRISODIUM CITRATE DIHYDRATE
     Indication: PROPHYLAXIS
     Route: 042
     Dates: start: 20200511, end: 20200511
  15. URSODEOXYCHOLIC ACID [Concomitant]
     Active Substance: URSODIOL
     Indication: PRODUCT USED FOR UNKNOWN INDICATION
     Route: 048
     Dates: start: 20200608, end: 20200614
  16. VENETOCLAX. [Suspect]
     Active Substance: VENETOCLAX
     Route: 048
     Dates: start: 20200524, end: 20200531
  17. VENETOCLAX. [Suspect]
     Active Substance: VENETOCLAX
     Route: 048
     Dates: start: 20200601, end: 20200608
  18. NORMAL SALINE SOLUTION (0.9% SODIUM CHLORIDE) [Concomitant]
     Route: 042
     Dates: start: 20200524, end: 20200524
  19. SODIUM BICARBONATE. [Concomitant]
     Active Substance: SODIUM BICARBONATE
     Route: 042
     Dates: start: 20200524, end: 20200524
  20. CEFACLOR. [Concomitant]
     Active Substance: CEFACLOR
     Indication: PRODUCT USED FOR UNKNOWN INDICATION
     Route: 048
     Dates: start: 20200608, end: 20200614
  21. FUROSEMIDE INJECTION [Concomitant]
     Active Substance: FUROSEMIDE
     Indication: POLYURIA
     Route: 040
     Dates: start: 20200622, end: 20200704
  22. NIAO DUQING TRADITIONAL CHINESE MEDICINE [Concomitant]
     Indication: RENAL DISORDER PROPHYLAXIS
     Dosage: 1 PACK
     Route: 048
     Dates: start: 20200702, end: 20200704
  23. SODIUM BICARBONATE. [Concomitant]
     Active Substance: SODIUM BICARBONATE
     Indication: PROPHYLAXIS
     Route: 042
     Dates: start: 20200511, end: 20200511
  24. SODIUM POTASSIUM MAGNESIUM CALCIUM AND GLUCOSE INJECTION [Concomitant]
     Active Substance: CALCIUM GLUCONATE\DEXTROSE\MAGNESIUM CHLORIDE\POTASSIUM CHLORIDE\SODIUM ACETATE\SODIUM CHLORIDE\TRISODIUM CITRATE DIHYDRATE
     Route: 042
     Dates: start: 20200518, end: 20200518
  25. SODIUM BICARBONATE INJECTION [Concomitant]
     Active Substance: SODIUM BICARBONATE
     Route: 041
     Dates: start: 20200622, end: 20200704
  26. NARCARICIN MITE [Concomitant]
     Indication: BLOOD URIC ACID INCREASED
     Route: 048
     Dates: start: 20200622, end: 20200628
  27. CEFOPERAZONE SODIUM AND SULBACTAM SODIUM FOR INJECTION [Concomitant]
     Indication: ANTIINFLAMMATORY THERAPY
     Route: 041
     Dates: start: 20200630, end: 20200704
  28. MOSAPRIDE CITRATE TABLETS [Concomitant]
     Active Substance: MOSAPRIDE CITRATE
     Indication: GASTRIC HYPOMOTILITY
     Route: 048
     Dates: start: 20200701, end: 20200704
  29. COMPOUND ALPHA KETOACID TABLETS [Concomitant]
     Indication: RENAL DISORDER PROPHYLAXIS
     Dosage: 3 PILLS
     Route: 048
     Dates: start: 20200702, end: 20200704
  30. VORICONAZOLE FOR INJECTION [Concomitant]
     Indication: INFECTION PROPHYLAXIS
     Route: 041
     Dates: start: 20200702, end: 20200704
  31. MABTHERA [Concomitant]
     Active Substance: RITUXIMAB
     Indication: CHRONIC LYMPHOCYTIC LEUKAEMIA
     Route: 042
     Dates: start: 20200703, end: 20200703
  32. IMBRUVICA [Concomitant]
     Active Substance: IBRUTINIB
     Indication: CHRONIC LYMPHOCYTIC LEUKAEMIA
     Route: 048
     Dates: start: 20200703, end: 20200704
  33. COMPOUND SODIUM CHLORIDE [Concomitant]
     Indication: PROPHYLAXIS
     Route: 042
     Dates: start: 20200511, end: 20200511
  34. SODIUM POTASSIUM MAGNESIUM CALCIUM AND GLUCOSE INJECTION [Concomitant]
     Active Substance: CALCIUM GLUCONATE\DEXTROSE\MAGNESIUM CHLORIDE\POTASSIUM CHLORIDE\SODIUM ACETATE\SODIUM CHLORIDE\TRISODIUM CITRATE DIHYDRATE
     Route: 042
     Dates: start: 20200524, end: 20200524
  35. VALACYCLOVIR HYDROCHLORIDE. [Concomitant]
     Active Substance: VALACYCLOVIR HYDROCHLORIDE
     Indication: PRODUCT USED FOR UNKNOWN INDICATION
     Route: 048
     Dates: start: 20200608, end: 20200614
  36. SHENG XUE XIAO BAN JIAO NANG [Concomitant]
     Indication: PLATELET COUNT INCREASED
     Route: 048
     Dates: start: 20200608, end: 20200614
  37. ENTECAVIR TABLETS [Concomitant]
     Indication: ANTIVIRAL PROPHYLAXIS
     Route: 048
     Dates: start: 20200630, end: 20200704
  38. NORMAL SALINE SOLUTION (0.9% SODIUM CHLORIDE) [Concomitant]
     Indication: PROPHYLAXIS
     Route: 042
     Dates: start: 20200511, end: 20200511
  39. COMPOUND SODIUM CHLORIDE [Concomitant]
     Route: 042
     Dates: start: 20200524, end: 20200524
  40. SOLU?MEDROL [Concomitant]
     Active Substance: METHYLPREDNISOLONE SODIUM SUCCINATE
     Indication: ANAPHYLAXIS PROPHYLAXIS
     Route: 040
     Dates: start: 20200620, end: 20200630
  41. SODIUM BICARBONATE TABLETS [Concomitant]
     Indication: INFECTION PROPHYLAXIS
     Dosage: 5 PILLS
     Route: 041
     Dates: start: 20200620, end: 20200704
  42. CEFOXITIN SODIUM [Concomitant]
     Active Substance: CEFOXITIN SODIUM
     Indication: PRODUCT USED FOR UNKNOWN INDICATION
     Route: 042
     Dates: start: 20200613, end: 20200616
  43. VORICONAZOLE DISPERSIBLE TABLETS [Concomitant]
     Indication: INFECTION PROPHYLAXIS
     Route: 048
     Dates: start: 20200620, end: 20200702
  44. FUROSEMIDE INJECTION [Concomitant]
     Active Substance: FUROSEMIDE
     Route: 041
     Dates: start: 20200704, end: 20200704
  45. FEBUXOSTAT TABLETS [Concomitant]
     Active Substance: FEBUXOSTAT
     Indication: BLOOD URIC ACID INCREASED
     Dosage: 1 PILL
     Route: 048
     Dates: start: 20200602, end: 20200704
  46. LENALIDOMIDE CAPSULES [Concomitant]
     Indication: CHRONIC LYMPHOCYTIC LEUKAEMIA
     Route: 048
     Dates: start: 20200703, end: 20200703

REACTIONS (2)
  - Platelet count decreased [Fatal]
  - Arrhythmia [Fatal]

NARRATIVE: CASE EVENT DATE: 20200613
